FAERS Safety Report 20624448 (Version 1)
Quarter: 2022Q1

REPORT INFORMATION
  Report Type: Report from Study
  Country: JP (occurrence: JP)
  Receive Date: 20220322
  Receipt Date: 20220322
  Transmission Date: 20220423
  Serious: No
  Sender: FDA-Public Use
  Company Number: JP-JNJFOC-A-CH2018-180447

PATIENT
  Age: 62 Year
  Sex: Female

DRUGS (13)
  1. OPSUMIT [Suspect]
     Active Substance: MACITENTAN
     Indication: Pulmonary arterial hypertension
     Dosage: 10 MG, IN THE MORNING
     Route: 048
     Dates: start: 20171215
  2. OPSUMIT [Suspect]
     Active Substance: MACITENTAN
     Indication: Pulmonary arterial hypertension
  3. LASIX [Concomitant]
     Active Substance: FUROSEMIDE
     Indication: Right ventricular failure
     Route: 048
     Dates: start: 199708
  4. ADCIRCA [Concomitant]
     Active Substance: TADALAFIL
     Indication: Pulmonary arterial hypertension
     Route: 048
     Dates: start: 20120808
  5. VOGLIBOSE [Concomitant]
     Active Substance: VOGLIBOSE
     Indication: Diabetes prophylaxis
     Route: 048
  6. LEVOTHYROXINE SODIUM [Concomitant]
     Active Substance: LEVOTHYROXINE SODIUM
     Indication: Prophylaxis
     Route: 048
  7. SPIRONOLACTONE [Concomitant]
     Active Substance: SPIRONOLACTONE
     Indication: Right ventricular failure
     Route: 048
     Dates: start: 199708
  8. FLOLAN [Concomitant]
     Active Substance: EPOPROSTENOL SODIUM
     Indication: Pulmonary arterial hypertension
     Dosage: 35NG/KG/MIN
     Route: 041
     Dates: start: 20050401
  9. OXYGEN [Concomitant]
     Active Substance: OXYGEN
     Dosage: DOSE UNKNOWN
     Route: 055
  10. SAMSCA [Concomitant]
     Active Substance: TOLVAPTAN
     Indication: Right ventricular failure
     Route: 048
     Dates: start: 201810
  11. XARELTO [Concomitant]
     Active Substance: RIVAROXABAN
     Indication: Atrial flutter
     Route: 048
     Dates: start: 201810
  12. ENALAPRIL [Concomitant]
     Active Substance: ENALAPRIL
     Indication: Right ventricular failure
     Route: 048
     Dates: start: 20190911, end: 20191009
  13. LOSARTAN POTASSIUM [Concomitant]
     Active Substance: LOSARTAN POTASSIUM
     Indication: Right ventricular failure
     Route: 048
     Dates: start: 20191009

REACTIONS (1)
  - Atrial flutter [Recovering/Resolving]

NARRATIVE: CASE EVENT DATE: 20180928
